FAERS Safety Report 18714243 (Version 13)
Quarter: 2022Q3

REPORT INFORMATION
  Report Type: Report from Study
  Country: CO (occurrence: CO)
  Receive Date: 20210107
  Receipt Date: 20220901
  Transmission Date: 20221027
  Serious: Yes (Other)
  Sender: FDA-Public Use
  Company Number: CO-TAKEDA-2021TUS000680

PATIENT
  Age: 29 Year
  Sex: Male
  Weight: 74 kg

DRUGS (6)
  1. VEDOLIZUMAB [Suspect]
     Active Substance: VEDOLIZUMAB
     Indication: Colitis ulcerative
     Dosage: 300 MILLIGRAM
     Route: 042
     Dates: start: 20191218
  2. VEDOLIZUMAB [Suspect]
     Active Substance: VEDOLIZUMAB
     Dosage: 300 MILLIGRAM
     Route: 042
  3. VEDOLIZUMAB [Suspect]
     Active Substance: VEDOLIZUMAB
     Dosage: 300 MILLIGRAM
     Route: 042
  4. MESALAMINE [Suspect]
     Active Substance: MESALAMINE
     Indication: Product used for unknown indication
     Dosage: 2 GRAM, Q12H
     Route: 065
  5. PREDNISOLONE [Concomitant]
     Active Substance: PREDNISOLONE
     Dosage: 40 MILLIGRAM
  6. AZATHIOPRINE [Concomitant]
     Active Substance: AZATHIOPRINE
     Dosage: 50 MILLIGRAM

REACTIONS (19)
  - Varicella [Not Recovered/Not Resolved]
  - Nasal dryness [Recovering/Resolving]
  - Weight increased [Unknown]
  - Toothache [Recovered/Resolved]
  - Malaise [Recovering/Resolving]
  - Influenza [Unknown]
  - Weight decreased [Unknown]
  - Frequent bowel movements [Recovered/Resolved]
  - Faeces soft [Recovered/Resolved]
  - Abdominal discomfort [Recovered/Resolved]
  - Respiratory disorder [Recovering/Resolving]
  - Throat irritation [Recovering/Resolving]
  - Stomatitis [Not Recovered/Not Resolved]
  - Abdominal pain [Recovered/Resolved]
  - Productive cough [Recovering/Resolving]
  - Nasal congestion [Recovering/Resolving]
  - Headache [Recovered/Resolved]
  - Cough [Recovering/Resolving]
  - Pyrexia [Recovered/Resolved]

NARRATIVE: CASE EVENT DATE: 20201231
